FAERS Safety Report 8835789 (Version 1)
Quarter: 2012Q4

REPORT INFORMATION
  Report Type: Report from Study
  Country: US (occurrence: US)
  Receive Date: 20121011
  Receipt Date: 20121011
  Transmission Date: 20130627
  Serious: Yes (Life-Threatening, Hospitalization)
  Sender: FDA-Public Use
  Company Number: US-GLAXOSMITHKLINE-A0996747A

PATIENT
  Age: 72 Year
  Sex: Female
  Weight: 71.2 kg

DRUGS (10)
  1. PAZOPANIB [Suspect]
     Indication: OVARIAN EPITHELIAL CANCER
     Dosage: 800MG Per day
     Route: 048
     Dates: start: 20120816, end: 20120918
  2. PACLITAXEL [Suspect]
     Indication: OVARIAN EPITHELIAL CANCER
     Dosage: 80MGM2 Cyclic
     Route: 042
     Dates: start: 20120816, end: 20120912
  3. ACETAMINOPHEN [Concomitant]
  4. CALCIUM CITRATE [Concomitant]
  5. CLOBETASOL [Concomitant]
  6. DOCUSATE SODIUM [Concomitant]
  7. LORATADINE [Concomitant]
  8. LORAZEPAM [Concomitant]
  9. OMEPRAZOLE [Concomitant]
  10. MIRALAX [Concomitant]

REACTIONS (5)
  - Stress cardiomyopathy [Recovering/Resolving]
  - Hypotension [Recovering/Resolving]
  - Left ventricular dysfunction [Recovering/Resolving]
  - Electrocardiogram QT prolonged [Recovering/Resolving]
  - Angina pectoris [Recovering/Resolving]
